FAERS Safety Report 6207331-3 (Version None)
Quarter: 2009Q2

REPORT INFORMATION
  Report Type: 
  Country: None (occurrence: None)
  Receive Date: 20090528
  Receipt Date: 20090513
  Transmission Date: 20091009
  Serious: Yes (Death, Life-Threatening, Other)
  Sender: FDA-Public Use
  Company Number: JP-PFIZER INC-2009171745

PATIENT
  Age: 70 Year

DRUGS (7)
  1. SUNITINIB MALATE [Suspect]
     Indication: RENAL CELL CARCINOMA
     Dosage: 50 MG, 1X/DAY
     Route: 048
     Dates: start: 20090126, end: 20090208
  2. MAGLAX (MAGNESIUM OXIDE) [Concomitant]
     Route: 048
     Dates: end: 20090210
  3. ETODOLAC [Concomitant]
     Route: 048
     Dates: end: 20090210
  4. SELBEX (TEPRENONE) [Concomitant]
     Route: 048
     Dates: end: 20090210
  5. MEDICON (DEXTROMETHORPHAN HYDROBROMIDE) [Concomitant]
     Route: 048
     Dates: end: 20090210
  6. LENDORM [Concomitant]
     Route: 048
     Dates: end: 20090210
  7. DEXALTIN (DEXAMETHASONE) [Concomitant]
     Dates: start: 20090204, end: 20090211

REACTIONS (5)
  - ANAEMIA [None]
  - DISEASE PROGRESSION [None]
  - PLATELET COUNT DECREASED [None]
  - RENAL CELL CARCINOMA [None]
  - RENAL FAILURE [None]
